FAERS Safety Report 7892498-1 (Version None)
Quarter: 2011Q4

REPORT INFORMATION
  Report Type: 
  Country: None (occurrence: None)
  Receive Date: 20111028
  Receipt Date: 20111028
  Transmission Date: 20120403
  Serious: Yes (Death, Hospitalization)
  Sender: FDA-Public Use
  Company Number: THYM-1001118

PATIENT
  Age: 27 Year
  Sex: Male

DRUGS (7)
  1. OMEPRAZOLE [Concomitant]
  2. THYMOGLOBULIN [Suspect]
     Indication: APLASTIC ANAEMIA
     Dosage: 250 MG, QD, INTRAVENOUS
     Route: 042
     Dates: start: 20090218, end: 20090223
  3. THYMOGLOBULIN [Suspect]
  4. ITRACONAZOLE [Concomitant]
  5. ACYCLOVIR [Concomitant]
  6. CYCLOSPORINE [Suspect]
     Indication: APLASTIC ANAEMIA
     Dosage: 50 MG, QD,
     Dates: start: 20090218, end: 20090914
  7. NEOMYCIN [Concomitant]

REACTIONS (9)
  - ENTEROCOCCUS TEST POSITIVE [None]
  - GENERALISED ERYTHEMA [None]
  - LOWER RESPIRATORY TRACT INFECTION FUNGAL [None]
  - CARDIAC ARREST [None]
  - DEVICE RELATED INFECTION [None]
  - SEPTIC SHOCK [None]
  - STEM CELL TRANSPLANT [None]
  - FEBRILE NEUTROPENIA [None]
  - DIARRHOEA [None]
